FAERS Safety Report 17277694 (Version 4)
Quarter: 2021Q3

REPORT INFORMATION
  Report Type: Report from Study
  Country: US (occurrence: US)
  Receive Date: 20200116
  Receipt Date: 20210930
  Transmission Date: 20211014
  Serious: Yes (Death)
  Sender: FDA-Public Use
  Company Number: US-PFIZER INC-2019557504

PATIENT
  Age: 41 Year
  Sex: Female
  Weight: 72.6 kg

DRUGS (8)
  1. PLACEBO [Suspect]
     Active Substance: UNSPECIFIED INGREDIENT
     Indication: ACUTE MYELOID LEUKAEMIA
     Dosage: ONCE DAILY CONTINOUS
     Route: 048
     Dates: start: 20191005, end: 20191223
  2. DAUNORUBICIN [Suspect]
     Active Substance: DAUNORUBICIN
     Indication: ACUTE MYELOID LEUKAEMIA
     Dosage: 110 MG, DAILY BY CONTINUOUS INFUSION (INDUCTION)
     Route: 041
     Dates: start: 20191005, end: 20191007
  3. DRONABINOL. [Concomitant]
     Active Substance: DRONABINOL
     Indication: NAUSEA
     Dosage: 5 MG, TWICE A DAY
     Route: 048
     Dates: start: 20191016, end: 20191217
  4. OXYCODONE [Concomitant]
     Active Substance: OXYCODONE
     Indication: PAIN
     Dosage: 5 MG, AS NEEDED
     Route: 048
     Dates: start: 20191022, end: 20191217
  5. CYTARABINE. [Suspect]
     Active Substance: CYTARABINE
     Indication: ACUTE MYELOID LEUKAEMIA
     Dosage: 5 G, OVER 3 HOURS TWICE DAILY ON DAYS 1, 3, 5 (CONSOLIDATION)
     Route: 042
     Dates: start: 20191110, end: 20191113
  6. CYTARABINE. [Suspect]
     Active Substance: CYTARABINE
     Indication: ACUTE MYELOID LEUKAEMIA
     Dosage: 180 MG, DAILY BY CONTINUOUS INFUSION (INDUCTION)
     Route: 041
     Dates: start: 20191005, end: 20191012
  7. MEDROXYPROGESTERONE [Concomitant]
     Active Substance: MEDROXYPROGESTERONE
     Indication: PROPHYLAXIS
     Dosage: 20 MG, AS NEEDED
     Route: 048
     Dates: start: 20191007, end: 20191212
  8. TRANEXAMIC ACID. [Concomitant]
     Active Substance: TRANEXAMIC ACID
     Indication: PROPHYLAXIS
     Dosage: 1.3 G, AS NEEDED
     Route: 048
     Dates: start: 20191020, end: 20191212

REACTIONS (2)
  - Neutropenic sepsis [Fatal]
  - Septic shock [Fatal]

NARRATIVE: CASE EVENT DATE: 20191224
